FAERS Safety Report 5162342-4 (Version None)
Quarter: 2006Q4

REPORT INFORMATION
  Report Type: 
  Country: None (occurrence: None)
  Receive Date: 20061130
  Receipt Date: 20061124
  Transmission Date: 20070319
  Serious: Yes (Other)
  Sender: FDA-Public Use
  Company Number: CH-ABBOTT-06P-151-0351511-00

PATIENT
  Age: 64 Year
  Sex: Male
  Weight: 84 kg

DRUGS (1)
  1. KLACID TABLETS [Suspect]
     Indication: BRONCHITIS
     Dates: start: 20060529, end: 20060602

REACTIONS (2)
  - ANOSMIA [None]
  - DYSPEPSIA [None]
